FAERS Safety Report 19260132 (Version 2)
Quarter: 2022Q2

REPORT INFORMATION
  Report Type: Report from Study
  Country: US (occurrence: US)
  Receive Date: 20210514
  Receipt Date: 20220419
  Transmission Date: 20220720
  Serious: Yes (Hospitalization)
  Sender: FDA-Public Use
  Company Number: US-JAZZ-2020-US-007822

PATIENT
  Sex: Female

DRUGS (62)
  1. XYREM [Suspect]
     Active Substance: SODIUM OXYBATE
     Indication: Narcolepsy
     Dosage: 2.25 GRAM, BID
     Route: 048
     Dates: start: 200606, end: 200801
  2. XYREM [Suspect]
     Active Substance: SODIUM OXYBATE
     Dosage: 2.25 GRAM, BID
     Route: 048
     Dates: start: 200912, end: 201001
  3. XYREM [Suspect]
     Active Substance: SODIUM OXYBATE
     Dosage: 3 GRAM
     Route: 048
     Dates: start: 201001, end: 201004
  4. XYREM [Suspect]
     Active Substance: SODIUM OXYBATE
     Dosage: 2.25 GRAM, BID
     Route: 048
     Dates: start: 201104, end: 201105
  5. XYREM [Suspect]
     Active Substance: SODIUM OXYBATE
     Dosage: 2.25 GRAM, BID
     Route: 048
     Dates: start: 201204, end: 201205
  6. XYREM [Suspect]
     Active Substance: SODIUM OXYBATE
     Dosage: 2.25 GRAM, BID
     Route: 048
     Dates: start: 201302, end: 201306
  7. XYREM [Suspect]
     Active Substance: SODIUM OXYBATE
     Dosage: 2.25 GRAM, BID
     Route: 048
     Dates: start: 201403, end: 201405
  8. XYREM [Suspect]
     Active Substance: SODIUM OXYBATE
     Dosage: DOSE ADJUSTMENT
     Route: 048
     Dates: start: 201405, end: 201808
  9. XYREM [Suspect]
     Active Substance: SODIUM OXYBATE
     Dosage: 3 GRAM, BID
     Route: 048
     Dates: start: 201808, end: 201812
  10. XYREM [Suspect]
     Active Substance: SODIUM OXYBATE
     Dosage: 3.75 GRAM, BID
     Route: 048
     Dates: start: 201906
  11. XYREM [Suspect]
     Active Substance: SODIUM OXYBATE
     Dosage: 3 GRAM, BID
     Route: 048
  12. XYREM [Suspect]
     Active Substance: SODIUM OXYBATE
     Dosage: 3 GRAM, FIRST DOSE
     Route: 048
     Dates: start: 202009, end: 202009
  13. XYREM [Suspect]
     Active Substance: SODIUM OXYBATE
     Dosage: 2.25 GRAM, SECOND DOSE
     Route: 048
     Dates: start: 202009, end: 202009
  14. XYREM [Suspect]
     Active Substance: SODIUM OXYBATE
     Dosage: 3.75 GRAM, BID
     Route: 048
     Dates: start: 202009, end: 202009
  15. XYREM [Suspect]
     Active Substance: SODIUM OXYBATE
     Dosage: 3 GRAM, FIRST DOSE
     Route: 048
     Dates: start: 202009
  16. XYREM [Suspect]
     Active Substance: SODIUM OXYBATE
     Dosage: 2.5 GRAM, SECOND DOSE
     Route: 048
     Dates: start: 202009
  17. XYREM [Suspect]
     Active Substance: SODIUM OXYBATE
     Dosage: 3 GRAM, FIRST DOSE
     Route: 048
  18. XYREM [Suspect]
     Active Substance: SODIUM OXYBATE
     Dosage: 2.25 GRAM, SECOND DOSE
     Route: 048
  19. XYREM [Suspect]
     Active Substance: SODIUM OXYBATE
     Dosage: 3 GRAM, FIRST DOSE
     Route: 048
     Dates: start: 2021
  20. XYREM [Suspect]
     Active Substance: SODIUM OXYBATE
     Dosage: 2.75 GRAM, SECOND DOSE
     Route: 048
     Dates: start: 2021
  21. PROVIGIL [Concomitant]
     Active Substance: MODAFINIL
  22. HUMULIN N [Concomitant]
     Active Substance: INSULIN HUMAN
  23. ACETAMINOPHEN\HYDROCODONE BITARTRATE [Concomitant]
     Active Substance: ACETAMINOPHEN\HYDROCODONE BITARTRATE
  24. METOPROLOL SUCCINATE [Concomitant]
     Active Substance: METOPROLOL SUCCINATE
  25. ENULOSE [Concomitant]
     Active Substance: LACTULOSE
  26. AMLODIPINE BESYLATE [Concomitant]
     Active Substance: AMLODIPINE BESYLATE
  27. XARELTO [Concomitant]
     Active Substance: RIVAROXABAN
  28. COCONUT OIL [Concomitant]
     Active Substance: COCONUT OIL
  29. ELOCON [Concomitant]
     Active Substance: MOMETASONE FUROATE
  30. REFRESH OPTIVE [Concomitant]
     Active Substance: CARBOXYMETHYLCELLULOSE SODIUM\GLYCERIN
  31. RESTASIS [Concomitant]
     Active Substance: CYCLOSPORINE
  32. CALCIUM [Concomitant]
     Active Substance: CALCIUM
  33. CRANBERRY PLUS VITAMIN C [Concomitant]
  34. ATROPINE\DIPHENOXYLATE [Concomitant]
     Active Substance: ATROPINE\DIPHENOXYLATE
  35. KRILL OIL [Concomitant]
     Active Substance: DIETARY SUPPLEMENT\KRILL OIL
  36. MAGNESIUM GLUCONATE [Concomitant]
     Active Substance: MAGNESIUM GLUCONATE
  37. HERBALS\TURMERIC [Concomitant]
     Active Substance: HERBALS\TURMERIC
  38. PRIMIDONE [Concomitant]
     Active Substance: PRIMIDONE
  39. RITALIN [Concomitant]
     Active Substance: METHYLPHENIDATE HYDROCHLORIDE
  40. VESICARE [Concomitant]
     Active Substance: SOLIFENACIN SUCCINATE
  41. DIFLUCAN [Concomitant]
     Active Substance: FLUCONAZOLE
  42. KEFLEX [Concomitant]
     Active Substance: CEPHALEXIN
  43. ASPIRIN [Concomitant]
     Active Substance: ASPIRIN
  44. LOTEMAX [Concomitant]
     Active Substance: LOTEPREDNOL ETABONATE
  45. LITHIUM CARBONATE [Concomitant]
     Active Substance: LITHIUM CARBONATE
  46. VITAMIN D NOS [Concomitant]
     Active Substance: VITAMIN D NOS
  47. LISINOPRIL [Concomitant]
     Active Substance: LISINOPRIL
  48. LYRICA [Concomitant]
     Active Substance: PREGABALIN
  49. PRAVASTATIN SODIUM [Concomitant]
     Active Substance: PRAVASTATIN SODIUM
  50. CHOLESTYRAMINE [Concomitant]
     Active Substance: CHOLESTYRAMINE
  51. BYDUREON [Concomitant]
     Active Substance: EXENATIDE
  52. DILANTIN [Concomitant]
     Active Substance: PHENYTOIN
  53. DICLOFENAC SODIUM [Concomitant]
     Active Substance: DICLOFENAC SODIUM
  54. HAIR, SKIN + NAILS [BIOTIN] [Concomitant]
  55. HUMALOG [Concomitant]
     Active Substance: INSULIN LISPRO
  56. HYDROCHLOROTHIAZIDE [Concomitant]
     Active Substance: HYDROCHLOROTHIAZIDE
  57. HYDROCODONE [Concomitant]
     Active Substance: HYDROCODONE
  58. LANTUS [Concomitant]
     Active Substance: INSULIN GLARGINE
  59. NORCO [Concomitant]
     Active Substance: ACETAMINOPHEN\HYDROCODONE BITARTRATE
  60. OMEGA-3 FATTY ACIDS [Concomitant]
     Active Substance: OMEGA-3 FATTY ACIDS
  61. VITAMIN B COMPLEX [Concomitant]
     Active Substance: CYANOCOBALAMIN\DEXPANTHENOL\NIACINAMIDE\PYRIDOXINE HYDROCHLORIDE\RIBOFLAVIN 5^-PHOSPHATE SODIUM\THIA
  62. VITAMIN D3 [Concomitant]
     Active Substance: CHOLECALCIFEROL

REACTIONS (2)
  - Somnolence [Recovered/Resolved]
  - Intentional product use issue [Unknown]
